FAERS Safety Report 7379579-6 (Version None)
Quarter: 2011Q1

REPORT INFORMATION
  Report Type: 
  Country: None (occurrence: None)
  Receive Date: 20110329
  Receipt Date: 20110314
  Transmission Date: 20110831
  Serious: Yes (Other)
  Sender: FDA-Public Use
  Company Number: US-RANBAXY-2011US-43068

PATIENT

DRUGS (4)
  1. SINGULAIR [Concomitant]
     Indication: PRODUCT USED FOR UNKNOWN INDICATION
     Route: 065
  2. VERAPAMIL [Suspect]
     Indication: MIGRAINE
     Dosage: UNK
     Route: 065
  3. CALAN [Suspect]
     Indication: HYPERTENSION
     Dosage: 180 MG, QD
     Route: 048
     Dates: start: 20010201
  4. CALAN [Suspect]
     Indication: MIGRAINE
     Dosage: 180 MG, QD
     Route: 048

REACTIONS (6)
  - HEADACHE [None]
  - STILLBIRTH [None]
  - PAIN [None]
  - DRUG EXPOSURE DURING PREGNANCY [None]
  - ANAPHYLACTIC SHOCK [None]
  - ANAEMIA [None]
